FAERS Safety Report 4300691-X (Version None)
Quarter: 2004Q1

REPORT INFORMATION
  Report Type: 
  Country: None (occurrence: None)
  Receive Date: 20040217
  Receipt Date: 20040209
  Transmission Date: 20041129
  Serious: Yes (Death, Hospitalization)
  Sender: FDA-Public Use
  Company Number: 2004SE00685

PATIENT
  Age: 57 Year
  Sex: Female

DRUGS (5)
  1. ATACAND [Suspect]
     Indication: HYPERTONIA
     Dates: start: 20030224, end: 20030302
  2. WARAN [Suspect]
     Indication: THROMBOSIS
     Dosage: 2.5 MG DAILY PO
     Route: 048
     Dates: start: 19900101, end: 20030302
  3. LASIX [Concomitant]
  4. SELOKEN ZOC [Concomitant]
  5. RENITEC [Concomitant]

REACTIONS (18)
  - ALVEOLITIS [None]
  - ANAEMIA [None]
  - ANGIOPATHY [None]
  - ARTERIAL THROMBOSIS [None]
  - BRAIN SCAN ABNORMAL [None]
  - DRUG EFFECT DECREASED [None]
  - GENERAL PHYSICAL HEALTH DETERIORATION [None]
  - HYPOTENSION [None]
  - INTERNATIONAL NORMALISED RATIO INCREASED [None]
  - INTRACRANIAL PRESSURE INCREASED [None]
  - MUSCLE HAEMORRHAGE [None]
  - MUSCULOSKELETAL DISCOMFORT [None]
  - OROPHARYNGEAL SWELLING [None]
  - PNEUMONITIS [None]
  - PULMONARY OEDEMA [None]
  - RETROPERITONEAL HAEMORRHAGE [None]
  - SWELLING FACE [None]
  - SWOLLEN TONGUE [None]
